FAERS Safety Report 18540847 (Version 3)
Quarter: 2020Q4

REPORT INFORMATION
  Report Type: Spontaneous
  Country: DE (occurrence: DE)
  Receive Date: 20201124
  Receipt Date: 20201208
  Transmission Date: 20210114
  Serious: Yes (Other)
  Sender: FDA-Public Use
  Company Number: DE-BAUSCH-BL-2020-033779

PATIENT
  Age: 76 Year
  Sex: Female
  Weight: 81 kg

DRUGS (3)
  1. XIFAXAN [Suspect]
     Active Substance: RIFAXIMIN
     Indication: HEPATIC ENCEPHALOPATHY
     Route: 048
     Dates: start: 20201005, end: 202010
  2. XIFAXAN [Suspect]
     Active Substance: RIFAXIMIN
     Dosage: RESTARTED FOR 3 DAYS (NEW PACK) (1 DF, BID 10 DAYS AFTER 1-0-0 (APPROX. 1 WEEK)) THEN (1-0-1)
     Route: 048
     Dates: start: 202010, end: 20201015
  3. METFORMIN [Concomitant]
     Active Substance: METFORMIN HYDROCHLORIDE
     Indication: DIABETES MELLITUS
     Route: 048

REACTIONS (6)
  - Drug intolerance [Unknown]
  - Intentional dose omission [Recovered/Resolved]
  - Intentional underdose [Recovered/Resolved]
  - Product taste abnormal [Unknown]
  - Dermatitis allergic [Recovered/Resolved]
  - Product odour abnormal [Unknown]

NARRATIVE: CASE EVENT DATE: 20201005
